FAERS Safety Report 6589003-9 (Version None)
Quarter: 2010Q1

REPORT INFORMATION
  Report Type: 
  Country: None (occurrence: None)
  Receive Date: 20100218
  Receipt Date: 20100205
  Transmission Date: 20100710
  Serious: No
  Sender: FDA-Public Use
  Company Number: US-JNJCH-2010001481

PATIENT
  Sex: Female

DRUGS (2)
  1. ROLAIDS TAB [Suspect]
     Indication: ABDOMINAL PAIN UPPER
     Dosage: TEXT:ONE TO TWO TABLETS 3-4 TIMES PER DAY
     Route: 048
  2. EXTRA STRENGTH TYLENOL [Suspect]
     Indication: DRUG USE FOR UNKNOWN INDICATION
     Dosage: TEXT:UNSPECIFIED
     Route: 065

REACTIONS (8)
  - ABDOMINAL PAIN UPPER [None]
  - DIARRHOEA [None]
  - GASTRIC DISORDER [None]
  - GASTRIC PH DECREASED [None]
  - NAUSEA [None]
  - PRODUCT ODOUR ABNORMAL [None]
  - PRODUCT QUALITY ISSUE [None]
  - VOMITING [None]
